FAERS Safety Report 21698348 (Version 1)
Quarter: 2022Q4

REPORT INFORMATION
  Report Type: Spontaneous
  Country: US (occurrence: US)
  Receive Date: 20221208
  Receipt Date: 20221208
  Transmission Date: 20230112
  Serious: Yes (Other)
  Sender: FDA-Public Use
  Company Number: US-SANOFI-01387413

PATIENT
  Sex: Female

DRUGS (4)
  1. ENOXAPARIN SODIUM [Suspect]
     Active Substance: ENOXAPARIN SODIUM
     Indication: Antiphospholipid syndrome
     Dosage: 40 MG, Q12H
  2. ENOXAPARIN SODIUM [Suspect]
     Active Substance: ENOXAPARIN SODIUM
     Dosage: 60 MG, Q12H
  3. COUMADIN [Concomitant]
     Active Substance: WARFARIN SODIUM
  4. CALCIUM [Concomitant]
     Active Substance: CALCIUM
     Indication: Osteopenia

REACTIONS (7)
  - Transient ischaemic attack [Unknown]
  - Haemorrhage [Unknown]
  - Migraine [Unknown]
  - Weight decreased [Unknown]
  - Haematoma [Unknown]
  - Maternal exposure during pregnancy [Unknown]
  - Product dose omission in error [Unknown]
